FAERS Safety Report 7524611-X (Version None)
Quarter: 2011Q2

REPORT INFORMATION
  Report Type: 
  Country: None (occurrence: None)
  Receive Date: 20110601
  Receipt Date: 20110601
  Transmission Date: 20111010
  Serious: Yes (Hospitalization)
  Sender: FDA-Public Use
  Company Number: None

PATIENT
  Age: 74 Year
  Sex: Female

DRUGS (13)
  1. ZEMPLAR [Concomitant]
  2. METOPROLOL [Concomitant]
  3. PAROXETINE HYDROCHLORIDE [Concomitant]
  4. EPOGEN [Concomitant]
  5. SPIRIVA [Concomitant]
  6. ISOSORBIDE [Concomitant]
  7. LEVOTHYROXINE SODIUM [Concomitant]
  8. SIMVASTATIN [Concomitant]
  9. LETAIRIS [Suspect]
     Indication: PULMONARY ARTERIAL HYPERTENSION
     Dosage: 10 MG DAILY ORAL
     Route: 048
     Dates: start: 20100910, end: 20110531
  10. LOSARTAN POTASSIUM [Concomitant]
  11. LEVEMIR [Concomitant]
  12. FLUTICASONE PROPIONATE [Concomitant]
  13. PROAIR HFA [Concomitant]

REACTIONS (13)
  - MENTAL STATUS CHANGES [None]
  - SEPTIC SHOCK [None]
  - FALL [None]
  - ACUTE MYOCARDIAL INFARCTION [None]
  - HYPOAESTHESIA [None]
  - GRAFT ISCHAEMIA [None]
  - ARTHRALGIA [None]
  - GRAFT INFECTION [None]
  - DEVICE RELATED INFECTION [None]
  - HAEMODIALYSIS [None]
  - PAIN IN EXTREMITY [None]
  - RIGHT VENTRICULAR DYSFUNCTION [None]
  - WHITE BLOOD CELL COUNT INCREASED [None]
